FAERS Safety Report 12700526 (Version 2)
Quarter: 2016Q3

REPORT INFORMATION
  Report Type: Spontaneous
  Country: PL (occurrence: PL)
  Receive Date: 20160830
  Receipt Date: 20160902
  Transmission Date: 20161109
  Serious: Yes (Death, Hospitalization, Other)
  Sender: FDA-Public Use
  Company Number: PL-GILEAD-2016-0230934

PATIENT
  Age: 60 Year
  Sex: Female
  Weight: 50 kg

DRUGS (12)
  1. HARVONI [Suspect]
     Active Substance: LEDIPASVIR\SOFOSBUVIR
     Indication: HEPATITIS C
     Dosage: 400 MG, UNK
     Route: 048
     Dates: start: 20160714, end: 20160821
  2. XIFAXAN [Concomitant]
     Active Substance: RIFAXIMIN
     Indication: ENCEPHALOPATHY
  3. SPIRONOL [Concomitant]
     Active Substance: SPIRONOLACTONE
     Indication: OEDEMA
  4. FUROSEMID                          /00032601/ [Concomitant]
     Active Substance: FUROSEMIDE
  5. GENSULIN R [Concomitant]
     Indication: DIABETES MELLITUS
  6. REBETOL [Concomitant]
     Active Substance: RIBAVIRIN
     Indication: HEPATITIS C
  7. METOPROLOL TARTRATE. [Concomitant]
     Active Substance: METOPROLOL TARTRATE
     Indication: HYPERTENSION
  8. ACENOCOUMAROL [Concomitant]
     Active Substance: ACENOCOUMAROL
     Indication: ATRIAL FIBRILLATION
  9. GENSULIN N [Concomitant]
     Indication: DIABETES MELLITUS
  10. SPIRONOL [Concomitant]
     Active Substance: SPIRONOLACTONE
     Indication: PLEURAL EFFUSION
  11. ALBUMIN [Concomitant]
     Active Substance: ALBUMIN HUMAN
     Indication: OEDEMA
  12. ALBUMIN [Concomitant]
     Active Substance: ALBUMIN HUMAN
     Indication: PLEURAL EFFUSION

REACTIONS (4)
  - Jaundice [Not Recovered/Not Resolved]
  - Hepatic failure [Fatal]
  - Death [Fatal]
  - Renal failure [Fatal]

NARRATIVE: CASE EVENT DATE: 20160729
